FAERS Safety Report 4325044-X (Version None)
Quarter: 2004Q1

REPORT INFORMATION
  Report Type: 
  Country: None (occurrence: None)
  Receive Date: 20040326
  Receipt Date: 20040326
  Transmission Date: 20041129
  Serious: Yes (Other)
  Sender: FDA-Public Use
  Company Number: None

PATIENT
  Sex: Male
  Weight: 87.0906 kg

DRUGS (2)
  1. ELIGARD [Suspect]
     Dosage: 22.5MG  Q 3 MOONTHS SUBCUTANEOUS
     Route: 058
     Dates: start: 20040210, end: 20040325
  2. ZOMETA [Concomitant]

REACTIONS (2)
  - CONTUSION [None]
  - SKIN INDURATION [None]
